FAERS Safety Report 10021529 (Version 3)
Quarter: 2014Q2

REPORT INFORMATION
  Report Type: Spontaneous
  Country: JP (occurrence: JP)
  Receive Date: 20140319
  Receipt Date: 20140520
  Transmission Date: 20141212
  Serious: Yes (Hospitalization)
  Sender: FDA-Public Use
  Company Number: JP-PFIZER INC-2014078376

PATIENT
  Age: 49 Year
  Sex: Female

DRUGS (2)
  1. ANCARON [Suspect]
     Indication: VENTRICULAR ARRHYTHMIA
     Dosage: 100 MG, UNK
     Route: 065
     Dates: start: 20121226
  2. ANCARON [Suspect]
     Indication: PALPITATIONS
     Dosage: 50 MG, UNK
     Route: 065
     Dates: start: 20130710

REACTIONS (4)
  - Thyroiditis [Recovered/Resolved]
  - Hyperthyroidism [Recovering/Resolving]
  - Respiratory paralysis [Recovering/Resolving]
  - Cardio-respiratory arrest [Recovered/Resolved]
